FAERS Safety Report 18271605 (Version 1)
Quarter: 2020Q3

REPORT INFORMATION
  Report Type: Spontaneous
  Country: US (occurrence: US)
  Receive Date: 20200916
  Receipt Date: 20200916
  Transmission Date: 20201103
  Serious: Yes (Other)
  Sender: FDA-Public Use
  Company Number: US-ROCHE-2674114

PATIENT
  Sex: Female

DRUGS (1)
  1. OCREVUS [Suspect]
     Active Substance: OCRELIZUMAB
     Indication: MULTIPLE SCLEROSIS
     Dosage: ON /JUN/2020, SHE RECEIVED LAST OCRELIZUMAB INFUSION 600 MG.
     Route: 065
     Dates: start: 2017

REACTIONS (2)
  - Cognitive disorder [Unknown]
  - Magnetic resonance imaging spinal abnormal [Unknown]
